FAERS Safety Report 21438445 (Version 3)
Quarter: 2024Q1

REPORT INFORMATION
  Report Type: Spontaneous
  Country: US (occurrence: US)
  Receive Date: 20221011
  Receipt Date: 20240215
  Transmission Date: 20240410
  Serious: Yes (Hospitalization, Other)
  Sender: FDA-Public Use
  Company Number: US-SA-SAC20221010000168

PATIENT
  Age: 51 Year
  Sex: Female
  Weight: 69.3 kg

DRUGS (14)
  1. DUPIXENT [Suspect]
     Active Substance: DUPILUMAB
     Indication: Dermatitis atopic
     Dosage: 300 MG, QOW
     Route: 058
     Dates: start: 202011
  2. TOPSIL [Concomitant]
  3. TRIAMCINOLONE ACETONIDE [Concomitant]
     Active Substance: TRIAMCINOLONE ACETONIDE
  4. CALCIUM [Concomitant]
     Active Substance: CALCIUM
     Dosage: 500(1250) TABLET
  5. CALCIUM\VITAMIN D [Concomitant]
     Active Substance: CALCIUM\VITAMIN D
  6. TRAZODONE HCL [Concomitant]
     Active Substance: TRAZODONE HYDROCHLORIDE
  7. SUCRALFATE [Concomitant]
     Active Substance: SUCRALFATE
  8. PREDNISONE [Concomitant]
     Active Substance: PREDNISONE
  9. OMEPRAZOLE [Concomitant]
     Active Substance: OMEPRAZOLE
  10. NALTREXONE HYDROCHLORIDE [Concomitant]
     Active Substance: NALTREXONE HYDROCHLORIDE
  11. HYDROXYZINE HYDROCHLORIDE [Concomitant]
     Active Substance: HYDROXYZINE HYDROCHLORIDE
  12. CARVEDILOL [Concomitant]
     Active Substance: CARVEDILOL
  13. CHOLECALCIFEROL [Concomitant]
     Active Substance: CHOLECALCIFEROL
  14. VITAMINS [Concomitant]
     Active Substance: VITAMINS

REACTIONS (12)
  - Pneumonia [Not Recovered/Not Resolved]
  - Ulcer haemorrhage [Not Recovered/Not Resolved]
  - Scratch [Unknown]
  - Lichenification [Unknown]
  - Dry skin [Unknown]
  - Skin weeping [Not Recovered/Not Resolved]
  - Skin tightness [Unknown]
  - Pruritus [Not Recovered/Not Resolved]
  - Product dose omission issue [Unknown]
  - Skin exfoliation [Unknown]
  - Insomnia [Unknown]
  - Rash [Not Recovered/Not Resolved]

NARRATIVE: CASE EVENT DATE: 20220901
